FAERS Safety Report 15385099 (Version 2)
Quarter: 2018Q3

REPORT INFORMATION
  Report Type: Spontaneous
  Country: US (occurrence: US)
  Receive Date: 20180914
  Receipt Date: 20180923
  Transmission Date: 20181010
  Serious: No
  Sender: FDA-Public Use
  Company Number: US-JNJFOC-20180818276

PATIENT
  Sex: Female

DRUGS (1)
  1. FENTANYL TRANSDERMAL SYSTEM [Suspect]
     Active Substance: FENTANYL
     Indication: PAIN
     Route: 062
     Dates: start: 2016

REACTIONS (8)
  - Wrong technique in product usage process [Unknown]
  - Withdrawal syndrome [Unknown]
  - Pain [Unknown]
  - Product availability issue [Unknown]
  - Adverse event [Unknown]
  - Headache [Unknown]
  - Product quality issue [Unknown]
  - Product administered at inappropriate site [Unknown]
